FAERS Safety Report 7466957-X (Version None)
Quarter: 2011Q2

REPORT INFORMATION
  Report Type: 
  Country: None (occurrence: None)
  Receive Date: 20110509
  Receipt Date: 20101008
  Transmission Date: 20111010
  Serious: No
  Sender: FDA-Public Use
  Company Number: PR-ALEXION-A201001280

PATIENT
  Sex: Female

DRUGS (4)
  1. PRILOSEC [Concomitant]
     Indication: GASTRITIS
     Dosage: UNK
  2. SOLIRIS [Suspect]
     Indication: PAROXYSMAL NOCTURNAL HAEMOGLOBINURIA
     Dosage: UNK
     Route: 042
     Dates: start: 20100624
  3. PREDNISONE [Concomitant]
     Indication: GASTRITIS
     Dosage: UNK
  4. BENTIN [Concomitant]
     Indication: PREMEDICATION

REACTIONS (2)
  - ALOPECIA [None]
  - ASTHENIA [None]
